FAERS Safety Report 15312935 (Version 3)
Quarter: 2019Q2

REPORT INFORMATION
  Report Type: Spontaneous
  Country: GB (occurrence: GB)
  Receive Date: 20180823
  Receipt Date: 20190513
  Transmission Date: 20190711
  Serious: Yes (Hospitalization)
  Sender: FDA-Public Use
  Company Number: PHHY2017GB204589

PATIENT
  Age: 56 Year
  Sex: Female

DRUGS (79)
  1. LISINOPRIL. [Concomitant]
     Active Substance: LISINOPRIL
     Indication: PRODUCT USED FOR UNKNOWN INDICATION
     Dosage: 7.5 MG, QD (DROP OF LVEF TO 59%.)
     Route: 048
     Dates: start: 20161110
  2. AMOXICILLIN. [Concomitant]
     Active Substance: AMOXICILLIN
     Indication: OSTEOMYELITIS
     Dosage: 1500 MG, QD
     Route: 048
     Dates: start: 20180701, end: 20180711
  3. BENZYLPENICILLIN [Concomitant]
     Active Substance: PENICILLIN G
     Indication: PYREXIA
     Dosage: UNK
     Route: 065
  4. PROMETHAZINE HYDROCHLORIDE. [Concomitant]
     Active Substance: PROMETHAZINE HYDROCHLORIDE
     Indication: PRODUCT USED FOR UNKNOWN INDICATION
     Dosage: 25 MG, QD
     Route: 048
  5. CO-AMOXICLAV [Concomitant]
     Active Substance: AMOXICILLIN\CLAVULANATE POTASSIUM
     Indication: PYREXIA
     Dosage: 1875 MG, QD
     Route: 048
     Dates: start: 20190205, end: 20190206
  6. GABAPENTIN. [Concomitant]
     Active Substance: GABAPENTIN
     Indication: PRODUCT USED FOR UNKNOWN INDICATION
     Dosage: 300 MG, Q72H
     Route: 048
     Dates: start: 20151231
  7. TRASTUZUMAB. [Suspect]
     Active Substance: TRASTUZUMAB
     Indication: BREAST CANCER
     Dosage: UNK
     Route: 065
  8. DEXAMETHASONE. [Concomitant]
     Active Substance: DEXAMETHASONE
     Dosage: 1 MG, UNK
     Route: 048
     Dates: start: 20151125, end: 20151202
  9. MORPHINE SULPHATE [Concomitant]
     Active Substance: MORPHINE SULFATE
     Dosage: 40 MG, UNK
     Route: 048
     Dates: start: 20150516, end: 201611
  10. LETROZOLE. [Concomitant]
     Active Substance: LETROZOLE
     Indication: BREAST CANCER METASTATIC
     Dosage: 2.5 MG, QD
     Route: 048
     Dates: start: 20150707
  11. FLUCLOXACILLIN [Concomitant]
     Active Substance: FLUCLOXACILLIN
     Dosage: 4 G, QD
     Route: 042
     Dates: start: 20180912, end: 20180915
  12. CIPROFLOXACIN. [Concomitant]
     Active Substance: CIPROFLOXACIN
     Indication: PYREXIA
     Dosage: 1500 MG, QD
     Route: 048
     Dates: start: 20190205, end: 20190206
  13. BLOOD [Concomitant]
     Active Substance: WHOLE BLOOD
     Dosage: UNK
     Route: 042
     Dates: start: 20170906, end: 20170906
  14. DOXYCYCLINE. [Concomitant]
     Active Substance: DOXYCYCLINE
     Dosage: 100 MG, QD
     Route: 048
     Dates: start: 20180815
  15. ZOMORPH [Concomitant]
     Active Substance: MORPHINE SULFATE
     Dosage: 30 MG, QOD
     Route: 048
     Dates: start: 201611
  16. LINEZOLID. [Concomitant]
     Active Substance: LINEZOLID
     Indication: PYREXIA
     Dosage: 1200 MG, QD
     Route: 048
     Dates: start: 20181223, end: 20181227
  17. ZOMETA [Concomitant]
     Active Substance: ZOLEDRONIC ACID
     Indication: PRODUCT USED FOR UNKNOWN INDICATION
     Dosage: 4 MG, UNK
     Route: 042
     Dates: start: 20150817
  18. DEXAMETHASONE. [Concomitant]
     Active Substance: DEXAMETHASONE
     Dosage: 2 MG, QD
     Route: 048
     Dates: start: 20151118, end: 20151124
  19. ACYCLOVIR. [Concomitant]
     Active Substance: ACYCLOVIR
     Dosage: 5 %, UNK
     Route: 061
     Dates: start: 20161213, end: 20161218
  20. MORPHINE SULPHATE [Concomitant]
     Active Substance: MORPHINE SULFATE
     Dosage: 30 MG, UNK
     Route: 048
  21. AMOXICILLIN. [Concomitant]
     Active Substance: AMOXICILLIN
     Indication: LOWER RESPIRATORY TRACT INFECTION
     Dosage: UNK
     Route: 048
     Dates: start: 20170701, end: 20170706
  22. FLUCLOXACILLIN [Concomitant]
     Active Substance: FLUCLOXACILLIN
     Indication: CELLULITIS
     Dosage: 2000 MG, QD
     Route: 048
     Dates: start: 20161110, end: 20161117
  23. FLUCLOXACILLIN [Concomitant]
     Active Substance: FLUCLOXACILLIN
     Indication: PYREXIA
     Dosage: 500 MG, Q96H
     Route: 048
     Dates: start: 20161110, end: 20161117
  24. FLUCLOXACILLIN [Concomitant]
     Active Substance: FLUCLOXACILLIN
     Dosage: 2000 MG, QD
     Route: 048
     Dates: start: 20180910, end: 20180912
  25. DIAZEPAM. [Concomitant]
     Active Substance: DIAZEPAM
     Indication: BACK PAIN
     Dosage: UNK
     Route: 065
  26. CITALOPRAM [Concomitant]
     Active Substance: CITALOPRAM HYDROBROMIDE
     Indication: PRODUCT USED FOR UNKNOWN INDICATION
     Dosage: 40 MG, QD
     Route: 048
     Dates: start: 2005
  27. METRONIDAZOLE. [Concomitant]
     Active Substance: METRONIDAZOLE
     Dosage: 4 OT, QD
     Route: 048
     Dates: start: 20180915, end: 20180921
  28. BLOOD [Concomitant]
     Active Substance: WHOLE BLOOD
     Dosage: 1 OT, UNK
     Route: 042
     Dates: start: 20181022, end: 20181022
  29. PEPTAC [Concomitant]
     Active Substance: RANITIDINE HYDROCHLORIDE
     Indication: DYSPEPSIA
     Dosage: 15 ML, UNK
     Route: 048
  30. LINEZOLID. [Concomitant]
     Active Substance: LINEZOLID
     Dosage: 2 OT, QD
     Route: 048
     Dates: start: 20181223, end: 20181227
  31. AROMASIN [Suspect]
     Active Substance: EXEMESTANE
     Indication: BREAST CANCER METASTATIC
     Dosage: 25 MG, QD
     Route: 048
     Dates: start: 20170428, end: 20180110
  32. FLUCLOXACILLIN [Concomitant]
     Active Substance: FLUCLOXACILLIN
     Dosage: 4 OT, QD
     Route: 048
     Dates: start: 20180910, end: 20180912
  33. METRONIDAZOLE. [Concomitant]
     Active Substance: METRONIDAZOLE
     Indication: CELLULITIS
     Dosage: UNK
     Route: 048
     Dates: start: 20170701, end: 20170708
  34. METRONIDAZOLE. [Concomitant]
     Active Substance: METRONIDAZOLE
     Dosage: UNK
     Route: 065
  35. COTRIMOXAZOLE [Concomitant]
     Active Substance: SULFAMETHOXAZOLE\TRIMETHOPRIM
     Indication: PYREXIA
     Dosage: 1920 MG, QD
     Route: 048
     Dates: start: 20190206, end: 20190211
  36. TEICOPLANIN [Concomitant]
     Active Substance: TEICOPLANIN
     Indication: PYREXIA
     Dosage: 1200 MG, QD
     Route: 042
     Dates: start: 20181019, end: 20181025
  37. TRASTUZUMAB. [Suspect]
     Active Substance: TRASTUZUMAB
     Indication: BREAST CANCER METASTATIC
     Dosage: 600 MG, UNK
     Route: 058
     Dates: start: 20150716
  38. CODEINE [Concomitant]
     Active Substance: CODEINE
     Indication: PRODUCT USED FOR UNKNOWN INDICATION
     Dosage: 30 MG, UNK
     Route: 048
  39. DEXAMETHASONE. [Concomitant]
     Active Substance: DEXAMETHASONE
     Dosage: 1 MG, QD
     Route: 048
  40. PARACETAMOL [Concomitant]
     Active Substance: ACETAMINOPHEN
     Dosage: 500 MG, UNK
     Route: 048
  41. MORPHINE SULPHATE [Concomitant]
     Active Substance: MORPHINE SULFATE
     Dosage: 60 MG, UNK
     Route: 048
     Dates: start: 201504, end: 20160516
  42. MORPHINE SULPHATE [Concomitant]
     Active Substance: MORPHINE SULFATE
     Dosage: 40 MG, QD
     Route: 048
     Dates: start: 20171224
  43. DENOSUMAB [Concomitant]
     Active Substance: DENOSUMAB
     Indication: METASTASES TO BONE
     Dosage: 120 MG, UNK
     Route: 058
     Dates: start: 20170604, end: 20170613
  44. VITAMIN D3 [Concomitant]
     Active Substance: CHOLECALCIFEROL
     Indication: PRODUCT USED FOR UNKNOWN INDICATION
     Dosage: 400 IU, QD
     Route: 048
     Dates: start: 20150827
  45. CLARITHROMYCIN. [Concomitant]
     Active Substance: CLARITHROMYCIN
     Indication: PYREXIA
     Dosage: 1000 MG, QD
     Route: 048
     Dates: start: 20190415
  46. MEROPENEM. [Concomitant]
     Active Substance: MEROPENEM
     Dosage: 1 G, UNK
     Route: 042
     Dates: start: 20181222, end: 20181227
  47. FEMARA [Suspect]
     Active Substance: LETROZOLE
     Indication: BREAST CANCER METASTATIC
     Dosage: 2.5 MG, QD
     Route: 048
     Dates: start: 201507, end: 20170427
  48. DEXAMETHASONE. [Concomitant]
     Active Substance: DEXAMETHASONE
     Dosage: 8 MG, QD
     Route: 048
     Dates: start: 20151104, end: 20151110
  49. ACYCLOVIR. [Concomitant]
     Active Substance: ACYCLOVIR
     Indication: PRODUCT USED FOR UNKNOWN INDICATION
     Dosage: 800 MG, UNK
     Route: 048
     Dates: start: 20160727, end: 20160807
  50. LANSOPRAZOLE. [Concomitant]
     Active Substance: LANSOPRAZOLE
     Indication: PRODUCT USED FOR UNKNOWN INDICATION
     Dosage: 15 MG, QD
     Route: 048
     Dates: start: 2001
  51. DIAZEPAM. [Concomitant]
     Active Substance: DIAZEPAM
     Indication: MUSCULOSKELETAL STIFFNESS
     Dosage: 6 MG, QD
     Route: 048
     Dates: start: 20180105
  52. BENZYLPENICILLIN [Concomitant]
     Active Substance: PENICILLIN G
     Indication: CELLULITIS
     Dosage: 4.8 G, QD
     Route: 042
     Dates: start: 20180912, end: 20180915
  53. BLOOD [Concomitant]
     Active Substance: WHOLE BLOOD
     Indication: ANAEMIA
     Dosage: 1 OT, UNK
     Route: 042
     Dates: start: 20160317, end: 20160317
  54. BLOOD [Concomitant]
     Active Substance: WHOLE BLOOD
     Dosage: 1 OT, UNK
     Route: 042
     Dates: start: 20161022, end: 20161022
  55. DOXYCYCLINE. [Concomitant]
     Active Substance: DOXYCYCLINE
     Indication: PYREXIA
     Dosage: 200 MG, QD
     Route: 048
     Dates: start: 20180814
  56. CYCLIZINE [Concomitant]
     Active Substance: CYCLIZINE
     Dosage: 50 MG, Q72H
     Route: 048
     Dates: start: 201507
  57. ZOMORPH [Concomitant]
     Active Substance: MORPHINE SULFATE
     Indication: PRODUCT USED FOR UNKNOWN INDICATION
     Dosage: 60 MG, QD
     Route: 048
     Dates: start: 201611
  58. COTRIMOXAZOLE [Concomitant]
     Active Substance: SULFAMETHOXAZOLE\TRIMETHOPRIM
     Dosage: 960 MG, UNK
     Route: 048
  59. TRASTUZUMAB. [Suspect]
     Active Substance: TRASTUZUMAB
     Indication: HER-2 POSITIVE BREAST CANCER
     Dosage: 600 MG, QMO
     Route: 058
     Dates: start: 20150716, end: 20171222
  60. DEXAMETHASONE. [Concomitant]
     Active Substance: DEXAMETHASONE
     Indication: PRODUCT USED FOR UNKNOWN INDICATION
     Dosage: 16 MG, QD
     Route: 048
     Dates: start: 20151008, end: 20151020
  61. LOPERAMIDE [Concomitant]
     Active Substance: LOPERAMIDE
     Indication: DIARRHOEA
     Route: 065
  62. FLUCLOXACILLIN [Concomitant]
     Active Substance: FLUCLOXACILLIN
     Dosage: 4.8 G, QD
     Route: 042
     Dates: start: 20180912, end: 20180915
  63. DIAZEPAM. [Concomitant]
     Active Substance: DIAZEPAM
  64. CLARITHROMYCIN. [Concomitant]
     Active Substance: CLARITHROMYCIN
     Indication: LOWER RESPIRATORY TRACT INFECTION
     Dosage: 1000 MG, QD
     Route: 048
     Dates: start: 20180701, end: 20180711
  65. METRONIDAZOLE. [Concomitant]
     Active Substance: METRONIDAZOLE
     Indication: PYREXIA
     Dosage: 1600 MG, QD
     Route: 048
     Dates: start: 20180915, end: 20180921
  66. CYCLIZINE [Concomitant]
     Active Substance: CYCLIZINE
     Indication: PRODUCT USED FOR UNKNOWN INDICATION
     Dosage: 150 MG, QD
     Route: 048
     Dates: start: 201507
  67. MEROPENEM. [Concomitant]
     Active Substance: MEROPENEM
     Indication: PYREXIA
     Dosage: 3 G, QD
     Route: 042
     Dates: start: 20180813, end: 20180814
  68. MEROPENEM. [Concomitant]
     Active Substance: MEROPENEM
     Dosage: 3 G, QW
     Route: 042
     Dates: start: 20181222, end: 20181227
  69. PARACETAMOL [Concomitant]
     Active Substance: ACETAMINOPHEN
     Indication: PRODUCT USED FOR UNKNOWN INDICATION
     Dosage: 500 MG, UNK
     Route: 048
     Dates: start: 201504
  70. FRUSEMIDE [Concomitant]
     Active Substance: FUROSEMIDE
     Indication: LYMPHOEDEMA
     Dosage: 80 MG, UNK
     Route: 048
     Dates: start: 20151112, end: 20151118
  71. AMOXICILLIN. [Concomitant]
     Active Substance: AMOXICILLIN
     Indication: PYREXIA
     Dosage: 3000 MG, UNK
     Route: 048
     Dates: start: 20180701, end: 20180711
  72. FLUCLOXACILLIN [Concomitant]
     Active Substance: FLUCLOXACILLIN
     Dosage: 2000 MG, QD
     Route: 048
     Dates: start: 20180915, end: 20180921
  73. CIPROFLOXACIN. [Concomitant]
     Active Substance: CIPROFLOXACIN
     Dosage: 750 MG, UNK
     Route: 048
  74. DOXYCYCLINE. [Concomitant]
     Active Substance: DOXYCYCLINE
     Indication: LOWER RESPIRATORY TRACT INFECTION
     Dosage: 100 MG, QD
     Route: 048
     Dates: start: 20170112, end: 20170118
  75. MEROPENEM. [Concomitant]
     Active Substance: MEROPENEM
     Dosage: 1 G, UNK
     Route: 042
     Dates: start: 20190205, end: 20190205
  76. HYOSCINE BUTYLBROMIDE [Concomitant]
     Active Substance: BUTYLSCOPOLAMINE BROMIDE
     Indication: NAUSEA
     Dosage: 30 MG, QD
     Route: 048
     Dates: start: 20181222
  77. DEXAMETHASONE. [Concomitant]
     Active Substance: DEXAMETHASONE
     Dosage: 8 MG, QD
     Route: 048
     Dates: start: 20151020, end: 20151103
  78. DEXAMETHASONE. [Concomitant]
     Active Substance: DEXAMETHASONE
     Dosage: 4 MG, QD
     Route: 048
     Dates: start: 20151111, end: 20151117
  79. MORPHINE SULPHATE [Concomitant]
     Active Substance: MORPHINE SULFATE
     Indication: BACK PAIN
     Dosage: 30 MG, QD
     Route: 048
     Dates: start: 201504

REACTIONS (3)
  - Diarrhoea [Recovered/Resolved]
  - Lower respiratory tract infection [Recovered/Resolved]
  - Lower respiratory tract infection [Unknown]

NARRATIVE: CASE EVENT DATE: 20170112
